FAERS Safety Report 9073405 (Version 1)
Quarter: 2013Q1

REPORT INFORMATION
  Report Type: Report from Study
  Country: US (occurrence: US)
  Receive Date: 20130129
  Receipt Date: 20130129
  Transmission Date: 20140127
  Serious: No
  Sender: FDA-Public Use
  Company Number: US-ABBOTT-12P-163-0918976-00

PATIENT
  Age: 66 Year
  Sex: Female

DRUGS (13)
  1. HUMIRA 40 MG/0.8 ML PEN [Suspect]
     Indication: RHEUMATOID ARTHRITIS
     Dates: start: 20120224
  2. LISINOPRIL [Concomitant]
     Indication: HYPERTENSION
     Dosage: DAILY
  3. LEVOTHYROXINE [Concomitant]
     Indication: THYROID DISORDER
     Dosage: IN THE MORNING
  4. METOPROLOL [Concomitant]
     Indication: HYPERTENSION
     Dosage: 1 1/2 PILL ONCE A DAY
  5. GLYBURIDE W/METFORMIN [Concomitant]
     Indication: DIABETES MELLITUS
     Dosage: 2.5/500MG TWICE A DAY
  6. PLAVIX [Concomitant]
     Indication: STENT PLACEMENT
  7. CALTRATE WITH VITAMIN D [Concomitant]
     Indication: RHEUMATOID ARTHRITIS
  8. VITAMIN D [Concomitant]
     Indication: RHEUMATOID ARTHRITIS
  9. LINOMIDE [Concomitant]
     Indication: RHEUMATOID ARTHRITIS
  10. RESTASIS [Concomitant]
     Indication: DRY EYE
     Dosage: 1 DROP IN EACH EYE
  11. ALBUTEROL [Concomitant]
     Indication: ASTHMA
  12. SPIRIVA [Concomitant]
     Indication: ASTHMA
  13. OXYGEN [Concomitant]
     Indication: PRODUCT USED FOR UNKNOWN INDICATION
     Dosage: PRN USE MOBILE OXYGEN

REACTIONS (4)
  - Pain [Not Recovered/Not Resolved]
  - Muscular weakness [Not Recovered/Not Resolved]
  - Pain [Not Recovered/Not Resolved]
  - Motor dysfunction [Not Recovered/Not Resolved]
